FAERS Safety Report 4772381-0 (Version None)
Quarter: 2005Q3

REPORT INFORMATION
  Report Type: 
  Country: None (occurrence: None)
  Receive Date: 20050919
  Receipt Date: 20050207
  Transmission Date: 20060218
  Serious: No
  Sender: FDA-Public Use
  Company Number: US-BRISTOL-MYERS SQUIBB COMPANY-12854808

PATIENT
  Age: 9 Decade
  Sex: Female

DRUGS (1)
  1. KENALOG-40 [Suspect]
     Route: 031

REACTIONS (1)
  - EYE INFECTION INTRAOCULAR [None]
